FAERS Safety Report 24174123 (Version 2)
Quarter: 2024Q3

REPORT INFORMATION
  Report Type: Spontaneous
  Country: CA (occurrence: CA)
  Receive Date: 20240805
  Receipt Date: 20240913
  Transmission Date: 20241017
  Serious: Yes (Other)
  Sender: ASCEND
  Company Number: CA-Ascend Therapeutics US, LLC-2160015

PATIENT
  Sex: Female

DRUGS (3)
  1. ESTROGEL [Suspect]
     Active Substance: ESTRADIOL
     Indication: Product used for unknown indication
  2. ESTROGEL [Suspect]
     Active Substance: ESTRADIOL
  3. PROMETRIUM [Suspect]
     Active Substance: PROGESTERONE

REACTIONS (5)
  - Foreign body in throat [Unknown]
  - Dysphagia [Unknown]
  - Product shape issue [Unknown]
  - Fluid retention [Unknown]
  - Burning sensation [Unknown]
